FAERS Safety Report 7759537-X (Version None)
Quarter: 2011Q3

REPORT INFORMATION
  Report Type: 
  Country: None (occurrence: None)
  Receive Date: 20110919
  Receipt Date: 20110919
  Transmission Date: 20111222
  Serious: Yes (Other)
  Sender: FDA-Public Use
  Company Number: None

PATIENT
  Age: 50 Year
  Sex: Female
  Weight: 78.017 kg

DRUGS (1)
  1. CYMBALTA [Suspect]
     Indication: DEPRESSION
     Dosage: 30MG
     Route: 048

REACTIONS (9)
  - FEELING JITTERY [None]
  - RESTLESSNESS [None]
  - AGITATION [None]
  - WEIGHT DECREASED [None]
  - EMOTIONAL DISORDER [None]
  - WEIGHT INCREASED [None]
  - IRRITABILITY [None]
  - ANXIETY [None]
  - WITHDRAWAL SYNDROME [None]
